FAERS Safety Report 25063951 (Version 1)
Quarter: 2025Q1

REPORT INFORMATION
  Report Type: Spontaneous
  Country: US (occurrence: US)
  Receive Date: 20250311
  Receipt Date: 20250311
  Transmission Date: 20250409
  Serious: No
  Sender: MERCK SHARP & DOHME LLC
  Company Number: US-009507513-2261613

PATIENT
  Sex: Female

DRUGS (3)
  1. KEYTRUDA [Suspect]
     Active Substance: PEMBROLIZUMAB
     Indication: Clear cell renal cell carcinoma
  2. WELIREG [Suspect]
     Active Substance: BELZUTIFAN
     Route: 048
     Dates: start: 202411
  3. WELIREG [Suspect]
     Active Substance: BELZUTIFAN
     Route: 048

REACTIONS (2)
  - Eye disorder [Unknown]
  - Gastrointestinal disorder [Unknown]

NARRATIVE: CASE EVENT DATE: 20241101
